FAERS Safety Report 9400411 (Version 2)
Quarter: 2013Q3

REPORT INFORMATION
  Report Type: Spontaneous
  Country: DE (occurrence: None)
  Receive Date: 20130711
  Receipt Date: 20130725
  Transmission Date: 20140515
  Serious: Yes (Other)
  Sender: FDA-Public Use
  Company Number: 1307-878

PATIENT
  Age: 54 Year
  Sex: Male

DRUGS (1)
  1. EYLEA (AFLIBERCEPT)(INJECTION)(AFLIBERCEPT) [Suspect]
     Indication: CHOROIDAL NEOVASCULARISATION
     Dates: start: 20130702

REACTIONS (1)
  - Sudden visual loss [None]
